FAERS Safety Report 4725576-6 (Version None)
Quarter: 2005Q3

REPORT INFORMATION
  Report Type: 
  Country: None (occurrence: None)
  Receive Date: 20050722
  Receipt Date: 20050722
  Transmission Date: 20060218
  Serious: Yes (Hospitalization, Other)
  Sender: FDA-Public Use
  Company Number: None

PATIENT
  Sex: Male
  Weight: 78.2 kg

DRUGS (3)
  1. CISPLATIN [Suspect]
     Indication: NASOPHARYNGEAL CANCER
     Dosage: SEE IMAGE
     Dates: start: 20050606
  2. CARBOPLATIN [Suspect]
  3. FLUOROURACIL [Suspect]
     Dosage: SEE IMAGE
     Dates: start: 20050606, end: 20050610

REACTIONS (5)
  - DEHYDRATION [None]
  - MUCOSAL INFLAMMATION [None]
  - NAUSEA [None]
  - STOMATITIS [None]
  - VOMITING [None]
